FAERS Safety Report 12243162 (Version 1)
Quarter: 2016Q2

REPORT INFORMATION
  Report Type: Spontaneous
  Country: US (occurrence: US)
  Receive Date: 20160406
  Receipt Date: 20160406
  Transmission Date: 20160815
  Serious: No
  Sender: FDA-Public Use
  Company Number: US-SA-2015SA039909

PATIENT
  Age: 59 Year
  Sex: Male

DRUGS (3)
  1. ALLEGRA-D [Suspect]
     Active Substance: FEXOFENADINE\PSEUDOEPHEDRINE
     Indication: UPPER-AIRWAY COUGH SYNDROME
     Dosage: TAKEN FROM: 9 DAYS AGO, END DATE: 2 DAYS AGO?DOSE: 180MG/240MG
     Route: 048
  2. ALLEGRA-D [Suspect]
     Active Substance: FEXOFENADINE\PSEUDOEPHEDRINE
     Indication: RHINORRHOEA
     Dosage: TAKEN FROM: 9 DAYS AGO, END DATE: 2 DAYS AGO?DOSE: 180MG/240MG
     Route: 048
  3. ALLEGRA-D [Suspect]
     Active Substance: FEXOFENADINE\PSEUDOEPHEDRINE
     Indication: MULTIPLE ALLERGIES
     Dosage: TAKEN FROM: 9 DAYS AGO, END DATE: 2 DAYS AGO?DOSE: 180MG/240MG
     Route: 048

REACTIONS (1)
  - Drug ineffective [Unknown]
